FAERS Safety Report 24446321 (Version 1)
Quarter: 2024Q4

REPORT INFORMATION
  Report Type: Spontaneous
  Country: ES (occurrence: ES)
  Receive Date: 20241016
  Receipt Date: 20241016
  Transmission Date: 20250115
  Serious: Yes (Other)
  Sender: MYLAN
  Company Number: ES-MYLANLABS-2024M1093215

PATIENT
  Age: 50 Year
  Sex: Male

DRUGS (5)
  1. METHOTREXATE [Suspect]
     Active Substance: METHOTREXATE
     Indication: Dermatitis atopic
     Dosage: 12.5 MILLIGRAM, QW (14?MONTH COURSE)
     Route: 065
     Dates: start: 2016, end: 2017
  2. CYCLOSPORINE [Suspect]
     Active Substance: CYCLOSPORINE
     Indication: Dermatitis atopic
     Dosage: 300 MILLIGRAM, QD (14?16 MONTH CYCLES)
     Route: 065
     Dates: start: 2013, end: 2016
  3. CYCLOSPORINE [Suspect]
     Active Substance: CYCLOSPORINE
     Dosage: 200 MILLIGRAM, QD
     Route: 065
     Dates: start: 2020
  4. SIMVASTATIN [Concomitant]
     Active Substance: SIMVASTATIN
     Indication: Hypercholesterolaemia
     Dosage: UNK
     Route: 065
  5. MYCOPHENOLATE MOFETIL [Concomitant]
     Active Substance: MYCOPHENOLATE MOFETIL
     Indication: Dermatitis atopic
     Dosage: 2 GRAM, QD
     Route: 065
     Dates: start: 2017, end: 2019

REACTIONS (2)
  - Drug ineffective [Unknown]
  - Off label use [Unknown]
